FAERS Safety Report 5117056-3 (Version None)
Quarter: 2006Q3

REPORT INFORMATION
  Report Type: 
  Country: None (occurrence: None)
  Receive Date: 20060925
  Receipt Date: 20060912
  Transmission Date: 20061208
  Serious: Yes (Hospitalization)
  Sender: FDA-Public Use
  Company Number: 2006111468

PATIENT
  Age: 71 Year
  Sex: Male
  Weight: 79 kg

DRUGS (1)
  1. SUTENT [Suspect]
     Indication: METASTATIC RENAL CELL CARCINOMA
     Dosage: (50 MG, 1 IN 1 D), ORAL
     Route: 048
     Dates: start: 20060522

REACTIONS (3)
  - ABSCESS [None]
  - DUODENAL ULCER [None]
  - PYREXIA [None]
